FAERS Safety Report 9333116 (Version 2)
Quarter: 2013Q2

REPORT INFORMATION
  Report Type: Spontaneous
  Country: CN (occurrence: CN)
  Receive Date: 20130606
  Receipt Date: 20130610
  Transmission Date: 20140414
  Serious: Yes (Other)
  Sender: FDA-Public Use
  Company Number: CN-009507513-1306CHN001779

PATIENT
  Age: 79 Year
  Sex: Male
  Weight: 50 kg

DRUGS (1)
  1. TIENAM [Suspect]
     Indication: LUNG INFECTION
     Dosage: 1 G, BID
     Route: 042
     Dates: start: 20120411, end: 20120414

REACTIONS (3)
  - Loss of consciousness [Recovering/Resolving]
  - Illusion [Recovering/Resolving]
  - Hallucination, auditory [Recovering/Resolving]
